APPROVED DRUG PRODUCT: HALOPERIDOL
Active Ingredient: HALOPERIDOL
Strength: 20MG
Dosage Form/Route: TABLET;ORAL
Application: A072732 | Product #001
Applicant: LEDERLE LABORATORIES DIV AMERICAN CYANAMID CO
Approved: Sep 19, 1989 | RLD: No | RS: No | Type: DISCN